FAERS Safety Report 16369201 (Version 1)
Quarter: 2019Q2

REPORT INFORMATION
  Report Type: Spontaneous
  Country: US (occurrence: US)
  Receive Date: 20190529
  Receipt Date: 20190529
  Transmission Date: 20190711
  Serious: Yes (Hospitalization)
  Sender: FDA-Public Use
  Company Number: US-SAOL THERAPEUTICS-2019SAO00205

PATIENT
  Age: 41 Year
  Sex: Male

DRUGS (5)
  1. LIORESAL [Suspect]
     Active Substance: BACLOFEN
     Dosage: 1350 ?G, \DAY
     Route: 037
     Dates: start: 20190521
  2. LIORESAL [Suspect]
     Active Substance: BACLOFEN
     Dosage: 1680 ?G, \DAY
     Route: 037
     Dates: start: 201901, end: 201904
  3. LIORESAL [Suspect]
     Active Substance: BACLOFEN
     Dosage: 2191 ?G, \DAY
     Route: 037
     Dates: start: 201904, end: 20190425
  4. LIORESAL [Suspect]
     Active Substance: BACLOFEN
     Dosage: 1680 ?G, \DAY
     Route: 037
     Dates: start: 20190425, end: 2019
  5. LIORESAL [Suspect]
     Active Substance: BACLOFEN
     Dosage: 1500 ?G, \DAY
     Route: 037
     Dates: start: 2019, end: 20190521

REACTIONS (9)
  - Mental status changes [Recovered/Resolved]
  - Confusional state [Not Recovered/Not Resolved]
  - Depressed level of consciousness [Recovered/Resolved]
  - Urinary tract infection [Not Recovered/Not Resolved]
  - Agitation [Recovered/Resolved]
  - Toxicity to various agents [Recovered/Resolved]
  - Aggression [Not Recovered/Not Resolved]
  - Lethargy [Recovered/Resolved]
  - Overdose [Recovered/Resolved]

NARRATIVE: CASE EVENT DATE: 201904
